FAERS Safety Report 17865588 (Version 2)
Quarter: 2020Q2

REPORT INFORMATION
  Report Type: Spontaneous
  Country: US (occurrence: US)
  Receive Date: 20200605
  Receipt Date: 20200609
  Transmission Date: 20200714
  Serious: Yes (Other)
  Sender: FDA-Public Use
  Company Number: US-PFIZER INC-2020218108

PATIENT
  Age: 80 Year
  Sex: Female

DRUGS (3)
  1. COLCHICINE. [Concomitant]
     Active Substance: COLCHICINE
     Indication: GOUT
     Dosage: 0.06 MG, AS NEEDED
  2. IBRANCE [Suspect]
     Active Substance: PALBOCICLIB
     Indication: BREAST CANCER FEMALE
     Dosage: 100 MG, CYCLIC (TAKE ONE DAILY FOR 21 DAYS AND THEN 7 DAYS OFF)
     Dates: start: 201901
  3. IBRANCE [Suspect]
     Active Substance: PALBOCICLIB
     Dosage: 75 MG
     Dates: end: 202003

REACTIONS (5)
  - Second primary malignancy [Unknown]
  - Oedema [Unknown]
  - Nodule [Unknown]
  - Gastric cancer [Unknown]
  - Bone density decreased [Unknown]

NARRATIVE: CASE EVENT DATE: 202003
